FAERS Safety Report 8093868-1 (Version None)
Quarter: 2012Q1

REPORT INFORMATION
  Report Type: 
  Country: None (occurrence: None)
  Receive Date: 20120129
  Receipt Date: 20110913
  Transmission Date: 20120608
  Serious: No
  Sender: FDA-Public Use
  Company Number: US-ABBOTT-11P-163-0854535-00

PATIENT
  Sex: Female
  Weight: 118.04 kg

DRUGS (9)
  1. HUMIRA [Suspect]
     Indication: PSORIATIC ARTHROPATHY
     Dates: start: 20080101, end: 20110701
  2. CRESTOR [Concomitant]
     Indication: BLOOD CHOLESTEROL INCREASED
  3. LEXAPRO [Concomitant]
     Indication: ANXIETY
  4. NEXIUM [Concomitant]
     Indication: GASTROOESOPHAGEAL REFLUX DISEASE
  5. HUMIRA [Suspect]
     Dates: start: 20110801
  6. METFORMIN HCL [Concomitant]
     Indication: DIABETES MELLITUS
  7. LISINOPRIL [Concomitant]
     Indication: PROPHYLAXIS
  8. BYETTA [Concomitant]
     Indication: DIABETES MELLITUS
  9. MELOXICAM [Concomitant]
     Indication: OSTEOARTHRITIS

REACTIONS (6)
  - HEADACHE [None]
  - DIARRHOEA [None]
  - FATIGUE [None]
  - VOMITING [None]
  - ARTHROPOD STING [None]
  - NASOPHARYNGITIS [None]
